FAERS Safety Report 8213761-0 (Version None)
Quarter: 2012Q1

REPORT INFORMATION
  Report Type: 
  Country: None (occurrence: None)
  Receive Date: 20120316
  Receipt Date: 20120315
  Transmission Date: 20120608
  Serious: Yes (Other)
  Sender: FDA-Public Use
  Company Number: PHFR2011IE006408

PATIENT
  Sex: Male
  Weight: 125 kg

DRUGS (7)
  1. VALPROATE SODIUM [Concomitant]
     Indication: CONVULSION
     Dosage: 1600 MG, DAILY
     Route: 048
     Dates: start: 20050101
  2. AVARDANET [Concomitant]
  3. FLUOXETINE HCL [Concomitant]
     Dosage: 20 MG, DAILY
     Route: 048
     Dates: start: 20110301
  4. DIAMICRON [Concomitant]
  5. LIPITOR [Concomitant]
  6. CLOZARIL [Suspect]
     Indication: SCHIZOPHRENIA
     Route: 048
     Dates: start: 20010716
  7. AMISULPRIDE [Concomitant]
     Dosage: 40 MG, DAILY
     Route: 048
     Dates: start: 20050101

REACTIONS (2)
  - THROMBOCYTOPENIA [None]
  - HAEMOGLOBIN INCREASED [None]
